FAERS Safety Report 25149218 (Version 1)
Quarter: 2025Q2

REPORT INFORMATION
  Report Type: Report from Study
  Country: US (occurrence: US)
  Receive Date: 20250402
  Receipt Date: 20250402
  Transmission Date: 20250716
  Serious: Yes (Other)
  Sender: TAKEDA
  Company Number: US-TAKEDA-2024TUS122247

PATIENT
  Sex: Female
  Weight: 57.6 kg

DRUGS (6)
  1. MARIBAVIR [Suspect]
     Active Substance: MARIBAVIR
     Indication: Cytomegalovirus infection
     Dosage: 400 MILLIGRAM, BID
     Dates: start: 20241119
  2. MARIBAVIR [Suspect]
     Active Substance: MARIBAVIR
     Indication: Leukopenia
     Dosage: 400 MILLIGRAM, BID
  3. PREDNISONE [Concomitant]
     Active Substance: PREDNISONE
     Indication: Transplant
     Dosage: 5 MILLIGRAM, QD
     Dates: start: 20240806
  4. TACROLIMUS [Concomitant]
     Active Substance: TACROLIMUS
     Indication: Transplant
  5. MYCOPHENOLATE MOFETIL [Concomitant]
     Active Substance: MYCOPHENOLATE MOFETIL
     Indication: Transplant
     Dosage: 36 GRAM, BID
     Dates: start: 20240806
  6. ATOVAQUONE [Concomitant]
     Active Substance: ATOVAQUONE
     Indication: Transplant
     Dosage: 10 MILLILITER, QD
     Dates: start: 20240806

REACTIONS (6)
  - Rash [Recovered/Resolved]
  - Scar [Unknown]
  - Peripheral swelling [Unknown]
  - Pruritus [Unknown]
  - Skin burning sensation [Unknown]
  - Urinary tract infection [Not Recovered/Not Resolved]
